FAERS Safety Report 14766649 (Version 16)
Quarter: 2020Q2

REPORT INFORMATION
  Report Type: Report from Study
  Country: None (occurrence: NL)
  Receive Date: 20180416
  Receipt Date: 20200531
  Transmission Date: 20200713
  Serious: Yes (Other)
  Sender: FDA-Public Use
  Company Number: NL-ABBVIE-18K-114-2320662-00

PATIENT
  Sex: Female
  Weight: 84 kg

DRUGS (14)
  1. DUODOPA [Suspect]
     Active Substance: CARBIDOPA\LEVODOPA
     Indication: PARKINSON^S DISEASE
     Dosage: MD 8, CD 5.2, ED 2, CND 4.2, END, 2
     Route: 050
     Dates: start: 20151026
  2. DUODOPA [Suspect]
     Active Substance: CARBIDOPA\LEVODOPA
     Dosage: MD: 8.0, CD: 5.0, ED: 2.0 + LOCKOUT TIME OF 3 HOURS, CND: 4.1
     Route: 050
  3. MACROGOL [Concomitant]
     Active Substance: POLYETHYLENE GLYCOLS
     Indication: ABNORMAL FAECES
  4. DUODOPA [Suspect]
     Active Substance: CARBIDOPA\LEVODOPA
     Dosage: DECREASED THE CONTINUOUS DOSE WITH 0.3 ML TO 4.5 ML
     Route: 050
  5. RIVASTIGMINE. [Concomitant]
     Active Substance: RIVASTIGMINE
     Indication: PRODUCT USED FOR UNKNOWN INDICATION
     Dosage: PLASTER
  6. MACROGOL [Concomitant]
     Active Substance: POLYETHYLENE GLYCOLS
     Indication: ABNORMAL FAECES
  7. DUODOPA [Suspect]
     Active Substance: CARBIDOPA\LEVODOPA
     Dosage: MD 8, CD 5.4, ED 2, CND 4.4, END, 2
     Route: 050
  8. DUODOPA [Suspect]
     Active Substance: CARBIDOPA\LEVODOPA
     Dosage: CONTINUOUS DOSE INCREASED WITH 0.2ML TO 4.8ML
     Route: 050
  9. DUODOPA [Suspect]
     Active Substance: CARBIDOPA\LEVODOPA
     Dosage: MD: 8.0, CD: 5.4, ED: 0.0, CND: 4.4, END: 0.0
     Route: 050
  10. DUODOPA [Suspect]
     Active Substance: CARBIDOPA\LEVODOPA
     Dosage: MD: 8.0, CD: 5.4, ED: 2.0, CND: 4.4, END: 2.0
     Route: 050
  11. DUODOPA [Suspect]
     Active Substance: CARBIDOPA\LEVODOPA
     Dosage: MD: 8.0, CD: 5.0, ED: 2.0, CND: 4.2, END: 0.0?24 HOUR ADMINISTRATION
     Route: 050
  12. DUODOPA [Suspect]
     Active Substance: CARBIDOPA\LEVODOPA
     Dosage: MD: 8.0, CD: 5.2, ED: 0.0, CND: 4.2, END: 0.0
     Route: 050
  13. DUODOPA [Suspect]
     Active Substance: CARBIDOPA\LEVODOPA
     Dosage: MORNING DOSE: 17 CONTINUOUS DOSE: 4.5 EXTRA DOSE: 3
     Route: 050
  14. CLOZAPINE. [Concomitant]
     Active Substance: CLOZAPINE
     Indication: MENTAL DISORDER
     Dosage: DIVIDED INTO 2 MOMENTS

REACTIONS (64)
  - Musculoskeletal disorder [Not Recovered/Not Resolved]
  - Emotional disorder [Not Recovered/Not Resolved]
  - Suspiciousness [Not Recovered/Not Resolved]
  - Impaired reasoning [Not Recovered/Not Resolved]
  - Hallucination [Recovered/Resolved]
  - Nausea [Recovering/Resolving]
  - Abdominal pain [Not Recovered/Not Resolved]
  - Chest pain [Not Recovered/Not Resolved]
  - Therapeutic product effect decreased [Not Recovered/Not Resolved]
  - Ophthalmic vein thrombosis [Not Recovered/Not Resolved]
  - Tension [Not Recovered/Not Resolved]
  - Foot deformity [Not Recovered/Not Resolved]
  - Fatigue [Not Recovered/Not Resolved]
  - Diplopia [Not Recovered/Not Resolved]
  - Dystonia [Not Recovered/Not Resolved]
  - Unevaluable event [Not Recovered/Not Resolved]
  - Motor dysfunction [Unknown]
  - Toe walking [Not Recovered/Not Resolved]
  - Abnormal faeces [Not Recovered/Not Resolved]
  - Restlessness [Not Recovered/Not Resolved]
  - Loss of personal independence in daily activities [Not Recovered/Not Resolved]
  - Asthenia [Not Recovered/Not Resolved]
  - Muscle spasms [Not Recovered/Not Resolved]
  - Shock [Not Recovered/Not Resolved]
  - Pollakiuria [Not Recovered/Not Resolved]
  - Anxiety [Not Recovered/Not Resolved]
  - Device kink [Unknown]
  - Speech disorder [Not Recovered/Not Resolved]
  - Feeling abnormal [Not Recovered/Not Resolved]
  - Emotional distress [Not Recovered/Not Resolved]
  - On and off phenomenon [Not Recovered/Not Resolved]
  - Parkinson^s disease [Not Recovered/Not Resolved]
  - Influenza like illness [Not Recovered/Not Resolved]
  - Pain in extremity [Not Recovered/Not Resolved]
  - Depressed mood [Not Recovered/Not Resolved]
  - Decreased appetite [Not Recovered/Not Resolved]
  - Weight decreased [Recovered/Resolved]
  - Abnormal behaviour [Not Recovered/Not Resolved]
  - Cataract [Not Recovered/Not Resolved]
  - Inflammation [Not Recovered/Not Resolved]
  - Suspiciousness [Not Recovered/Not Resolved]
  - Stress [Not Recovered/Not Resolved]
  - Pain in extremity [Unknown]
  - Faeces soft [Not Recovered/Not Resolved]
  - Psychomotor hyperactivity [Not Recovered/Not Resolved]
  - Dyspnoea [Not Recovered/Not Resolved]
  - Confusional state [Not Recovered/Not Resolved]
  - Stoma site erythema [Unknown]
  - Therapeutic product effect variable [Not Recovered/Not Resolved]
  - Eye inflammation [Not Recovered/Not Resolved]
  - Device use issue [Not Recovered/Not Resolved]
  - Panic reaction [Not Recovered/Not Resolved]
  - Emotional distress [Not Recovered/Not Resolved]
  - Mental disorder [Not Recovered/Not Resolved]
  - General physical health deterioration [Not Recovered/Not Resolved]
  - Gait disturbance [Not Recovered/Not Resolved]
  - Weight increased [Not Recovered/Not Resolved]
  - Urinary incontinence [Not Recovered/Not Resolved]
  - Diarrhoea [Not Recovered/Not Resolved]
  - Stoma site inflammation [Not Recovered/Not Resolved]
  - Chest discomfort [Not Recovered/Not Resolved]
  - Patient dissatisfaction with treatment [Not Recovered/Not Resolved]
  - Musculoskeletal stiffness [Not Recovered/Not Resolved]
  - Abnormal dreams [Not Recovered/Not Resolved]

NARRATIVE: CASE EVENT DATE: 2018
